FAERS Safety Report 6236527-X (Version None)
Quarter: 2009Q2

REPORT INFORMATION
  Report Type: 
  Country: None (occurrence: None)
  Receive Date: 20090619
  Receipt Date: 20090611
  Transmission Date: 20091009
  Serious: Yes (Other)
  Sender: FDA-Public Use
  Company Number: B0567950A

PATIENT
  Sex: Male
  Weight: 69 kg

DRUGS (6)
  1. RELENZA [Suspect]
     Indication: INFLUENZA
     Dosage: 10MG TWICE PER DAY
     Route: 055
     Dates: start: 20090212, end: 20090214
  2. CALONAL [Suspect]
     Indication: HYPERTHERMIA
     Dosage: 400MG THREE TIMES PER DAY
     Route: 065
     Dates: start: 20090212, end: 20090213
  3. MEIACT [Suspect]
     Indication: PHARYNGOTONSILLITIS
     Route: 048
     Dates: start: 20090216, end: 20090220
  4. TRANSAMIN [Suspect]
     Indication: PHARYNGOTONSILLITIS
     Route: 048
     Dates: start: 20090216, end: 20090218
  5. MUCODYNE [Suspect]
     Indication: PHARYNGOTONSILLITIS
     Route: 048
     Dates: start: 20090216, end: 20090220
  6. SERRAPEPTASE [Suspect]
     Indication: PHARYNGOTONSILLITIS
     Route: 048
     Dates: start: 20090216, end: 20090220

REACTIONS (4)
  - ABNORMAL BEHAVIOUR [None]
  - AGGRESSION [None]
  - HALLUCINATION [None]
  - NIGHTMARE [None]
